FAERS Safety Report 6736196-6 (Version None)
Quarter: 2010Q2

REPORT INFORMATION
  Report Type: 
  Country: None (occurrence: None)
  Receive Date: 20100521
  Receipt Date: 20100519
  Transmission Date: 20101027
  Serious: Yes (Death)
  Sender: FDA-Public Use
  Company Number: FR-ROCHE-704163

PATIENT
  Age: 70 Year
  Sex: Female

DRUGS (3)
  1. XELODA [Suspect]
     Indication: GASTRIC CANCER
     Route: 065
  2. EPIRUBICIN [Concomitant]
  3. OXALIPLATIN [Concomitant]

REACTIONS (1)
  - GASTRIC PERFORATION [None]
